FAERS Safety Report 10796942 (Version 1)
Quarter: 2015Q1

REPORT INFORMATION
  Report Type: Report from Study
  Country: US (occurrence: US)
  Receive Date: 20150216
  Receipt Date: 20150216
  Transmission Date: 20150721
  Serious: No
  Sender: FDA-Public Use
  Company Number: US-ABBVIE-14K-163-1211589-00

PATIENT
  Age: 43 Year
  Sex: Female

DRUGS (11)
  1. HUMIRA [Suspect]
     Active Substance: ADALIMUMAB
     Indication: COLITIS ULCERATIVE
     Dates: start: 20131024
  2. PRILOSEC [Concomitant]
     Active Substance: OMEPRAZOLE MAGNESIUM
     Indication: ULCER
     Dosage: ONE TABLET IN MORNING AND ONE TABLET AT NIGHT
  3. SERTRALINE [Concomitant]
     Active Substance: SERTRALINE HYDROCHLORIDE
     Indication: DEPRESSION
  4. ATENOLOL. [Concomitant]
     Active Substance: ATENOLOL
     Indication: HYPERTENSION
  5. HYDROCHLOROTHIAZIDE. [Concomitant]
     Active Substance: HYDROCHLOROTHIAZIDE
     Indication: HYPERTENSION
  6. LEVOTHYROXINE [Concomitant]
     Active Substance: LEVOTHYROXINE
     Indication: HYPOTHYROIDISM
     Dosage: IN MORNING
  7. ENTOCORT [Concomitant]
     Active Substance: BUDESONIDE
     Indication: COLITIS ULCERATIVE
     Dosage: IN MORNING
  8. NEURONTIN [Concomitant]
     Active Substance: GABAPENTIN
     Indication: BACK DISORDER
     Dosage: TWO TABLETS IN MORNING AND THREE TABLETS AT NIGHT
  9. ENTOCORT [Concomitant]
     Active Substance: BUDESONIDE
     Indication: ARTHRALGIA
  10. LISINOPRIL. [Concomitant]
     Active Substance: LISINOPRIL
     Indication: HYPERTENSION
  11. LIALDA [Concomitant]
     Active Substance: MESALAMINE
     Indication: COLITIS ULCERATIVE
     Dosage: AT NIGHT

REACTIONS (4)
  - Drug dose omission [Not Recovered/Not Resolved]
  - Memory impairment [Not Recovered/Not Resolved]
  - Incorrect product storage [Not Recovered/Not Resolved]
  - Abdominal pain upper [Unknown]

NARRATIVE: CASE EVENT DATE: 20140309
